FAERS Safety Report 13105928 (Version 3)
Quarter: 2017Q1

REPORT INFORMATION
  Report Type: Report from Study
  Country: RU (occurrence: RU)
  Receive Date: 20170111
  Receipt Date: 20170206
  Transmission Date: 20170428
  Serious: Yes (Death)
  Sender: FDA-Public Use
  Company Number: RU-US WORLDMEDS, LLC-USW201612-000984

PATIENT
  Age: 70 Year
  Sex: Male
  Weight: 89.4 kg

DRUGS (3)
  1. LEVODOPA/BENSERAZIDE [Concomitant]
     Active Substance: BENSERAZIDE\LEVODOPA
     Indication: PARKINSON^S DISEASE
     Route: 048
     Dates: start: 20150604
  2. PIRIBEDIL [Concomitant]
     Active Substance: PIRIBEDIL
     Indication: PARKINSON^S DISEASE
     Route: 048
     Dates: start: 20150730
  3. MYOBLOC [Suspect]
     Active Substance: RIMABOTULINUMTOXINB
     Indication: SALIVARY HYPERSECRETION
     Dates: start: 20151210, end: 20160926

REACTIONS (1)
  - Lung neoplasm [Fatal]

NARRATIVE: CASE EVENT DATE: 20161118
